FAERS Safety Report 19707018 (Version 1)
Quarter: 2021Q3

REPORT INFORMATION
  Report Type: Spontaneous
  Country: DE (occurrence: DE)
  Receive Date: 20210817
  Receipt Date: 20210817
  Transmission Date: 20211014
  Serious: Yes (Life-Threatening, Hospitalization, Other)
  Sender: FDA-Public Use
  Company Number: DE-MYLANLABS-2021M1051995

PATIENT
  Age: 87 Year
  Sex: Male

DRUGS (10)
  1. TORASEMID [Concomitant]
     Active Substance: TORSEMIDE
     Dosage: 20 MILLIGRAM, QD
  2. CANDESARTAN. [Concomitant]
     Active Substance: CANDESARTAN
     Dosage: 8 MILLIGRAM, QD
  3. XARELTO [Suspect]
     Active Substance: RIVAROXABAN
     Indication: PRODUCT USED FOR UNKNOWN INDICATION
     Dosage: 15 MILLIGRAM, QD
  4. METOPROLOL. [Suspect]
     Active Substance: METOPROLOL
     Indication: PRODUCT USED FOR UNKNOWN INDICATION
     Dosage: 0.25 DOSAGE FORM, QD
  5. ATORVASTATIN [Concomitant]
     Active Substance: ATORVASTATIN
     Dosage: 40 MILLIGRAM, QD
  6. AMIODARONE [Suspect]
     Active Substance: AMIODARONE
     Indication: PRODUCT USED FOR UNKNOWN INDICATION
     Dosage: 200 MILLIGRAM, AM
  7. PANTOPRAZOL                        /01263201/ [Concomitant]
     Active Substance: PANTOPRAZOLE
     Dosage: 40 MILLIGRAM, QD
  8. FLORADIX MIT EISEN [Concomitant]
     Dosage: 30 MG, 1?1?1?0
  9. FERRO SANOL [Concomitant]
     Active Substance: FERROUS GLYCINE SULFATE
     Dosage: 1 DOSAGE FORM, QD
  10. KALIUM                             /00031401/ [Concomitant]
     Active Substance: POTASSIUM CHLORIDE
     Dosage: 1 DOSAGE FORM, BEDARF, BRAUSETABLETTEN

REACTIONS (4)
  - Vomiting [Unknown]
  - General physical health deterioration [Unknown]
  - Anaemia [Unknown]
  - Bradycardia [Unknown]
